FAERS Safety Report 5763249-1 (Version None)
Quarter: 2008Q2

REPORT INFORMATION
  Report Type: 
  Country: None (occurrence: None)
  Receive Date: 20080604
  Receipt Date: 20080604
  Transmission Date: 20081010
  Serious: Yes (Life-Threatening, Hospitalization, Disabling)
  Sender: FDA-Public Use
  Company Number: None

PATIENT
  Age: 21 Year
  Sex: Male
  Weight: 63.5036 kg

DRUGS (1)
  1. PROPOFOL [Suspect]
     Indication: SEDATION
     Dosage: IV DRIP
     Route: 041
     Dates: start: 20070822, end: 20070822

REACTIONS (5)
  - PANCREATIC NECROSIS [None]
  - PANCREATITIS ACUTE [None]
  - PULMONARY OEDEMA [None]
  - RENAL FAILURE ACUTE [None]
  - RENAL NECROSIS [None]
